FAERS Safety Report 25883169 (Version 1)
Quarter: 2025Q4

REPORT INFORMATION
  Report Type: Report from Study
  Country: CN (occurrence: CN)
  Receive Date: 20251006
  Receipt Date: 20251006
  Transmission Date: 20260118
  Serious: Yes (Other)
  Sender: ROCHE
  Company Number: CN-ROCHE-10000389262

PATIENT

DRUGS (1)
  1. RITUXIMAB [Suspect]
     Active Substance: RITUXIMAB
     Indication: Nephrotic syndrome
     Dosage: SINGLE-DOSE REGIMEN, PER TIME, WITH A MAXIMUM DOSE?OF 500 MG, DILUTED IN 5% GLUCOSE SOLUTION OR 0.9%
     Route: 042

REACTIONS (5)
  - Urticaria [Recovered/Resolved]
  - Oropharyngeal pain [Recovered/Resolved]
  - Pyrexia [Recovered/Resolved]
  - Rhinalgia [Recovered/Resolved]
  - Nausea [Recovered/Resolved]
